FAERS Safety Report 10079756 (Version 5)
Quarter: 2014Q2

REPORT INFORMATION
  Report Type: Report from Study
  Country: US (occurrence: US)
  Receive Date: 20140415
  Receipt Date: 20140611
  Transmission Date: 20141212
  Serious: Yes (Hospitalization)
  Sender: FDA-Public Use
  Company Number: US-BAYER-2014-052352

PATIENT
  Age: 75 Year
  Sex: Female

DRUGS (3)
  1. NEXAVAR [Suspect]
     Indication: HEPATIC CANCER
     Dosage: 400 MG, BID
     Route: 048
     Dates: start: 20140311
  2. NEXAVAR [Suspect]
     Indication: HEPATIC CANCER
     Dosage: DOSE REGIMEN: 3X200
     Route: 048
  3. NEXAVAR [Suspect]
     Indication: HEPATIC CANCER
     Dosage: 400 MG, BID
     Route: 048

REACTIONS (10)
  - Hypertension [Not Recovered/Not Resolved]
  - Heart rate irregular [None]
  - Rash generalised [None]
  - Pruritus [None]
  - Exfoliative rash [None]
  - Pain in extremity [None]
  - Skin exfoliation [None]
  - Alopecia [None]
  - Headache [None]
  - Hypertension [None]
